FAERS Safety Report 5901427-9 (Version None)
Quarter: 2008Q3

REPORT INFORMATION
  Report Type: 
  Country: None (occurrence: None)
  Receive Date: 20080929
  Receipt Date: 20080730
  Transmission Date: 20090109
  Serious: No
  Sender: FDA-Public Use
  Company Number: US-BAYER-200830176NA

PATIENT
  Age: 26 Year
  Sex: Female
  Weight: 90 kg

DRUGS (2)
  1. OCELLA [Suspect]
     Indication: MENSTRUATION IRREGULAR
     Route: 048
     Dates: start: 20080723
  2. VITAMINS [Concomitant]

REACTIONS (4)
  - ANXIETY [None]
  - MUSCLE TIGHTNESS [None]
  - NERVOUSNESS [None]
  - PARAESTHESIA [None]
